FAERS Safety Report 9192684 (Version 1)
Quarter: 2013Q1

REPORT INFORMATION
  Report Type: Spontaneous
  Country: US (occurrence: None)
  Receive Date: 20130325
  Receipt Date: 20130325
  Transmission Date: 20140127
  Serious: Yes (Hospitalization)
  Sender: FDA-Public Use
  Company Number: None

PATIENT
  Age: 71 Year
  Sex: Female
  Weight: 96.2 kg

DRUGS (2)
  1. LENALIDOMIDE [Suspect]
     Indication: ACUTE MYELOID LEUKAEMIA
     Dosage: 50MG  DAILY FOR 28 DAYS  ORAL
     Route: 048
     Dates: start: 20130311, end: 20130316
  2. VIDAZA [Suspect]
     Indication: ACUTE MYELOID LEUKAEMIA
     Dosage: 159MG  DAYS 1-5 OF 28  IV
     Route: 042
     Dates: start: 20130311, end: 20130315

REACTIONS (2)
  - Device related infection [None]
  - Neutrophil count decreased [None]
